FAERS Safety Report 25821999 (Version 1)
Quarter: 2025Q3

REPORT INFORMATION
  Report Type: Spontaneous
  Country: US (occurrence: US)
  Receive Date: 20250919
  Receipt Date: 20250919
  Transmission Date: 20251020
  Serious: No
  Sender: WES PHARMA INC
  Company Number: US-WES Pharma Inc-2184848

PATIENT

DRUGS (1)
  1. ACETAMINOPHEN\OXYCODONE HYDROCHLORIDE [Suspect]
     Active Substance: ACETAMINOPHEN\OXYCODONE HYDROCHLORIDE
     Indication: Pain

REACTIONS (3)
  - Therapeutic response decreased [Unknown]
  - Gastrointestinal disorder [Unknown]
  - Product substitution issue [Unknown]
